FAERS Safety Report 11257724 (Version 1)
Quarter: 2015Q3

REPORT INFORMATION
  Report Type: Report from Study
  Country: DE (occurrence: DE)
  Receive Date: 20150710
  Receipt Date: 20150710
  Transmission Date: 20151125
  Serious: Yes (Hospitalization)
  Sender: FDA-Public Use
  Company Number: DE-ROCHE-1569786

PATIENT
  Age: 75 Year
  Sex: Male
  Weight: 57 kg

DRUGS (3)
  1. PANTOZOL [Concomitant]
     Active Substance: PANTOPRAZOLE SODIUM
     Route: 048
     Dates: start: 20130828
  2. BEVACIZUMAB [Suspect]
     Active Substance: BEVACIZUMAB
     Indication: BRONCHIAL CARCINOMA
     Route: 042
     Dates: start: 20130625
  3. CLEXANE [Concomitant]
     Active Substance: ENOXAPARIN SODIUM
     Route: 058
     Dates: start: 20141209, end: 20150510

REACTIONS (2)
  - Extremity necrosis [Recovered/Resolved]
  - Vascular occlusion [Recovered/Resolved]

NARRATIVE: CASE EVENT DATE: 20150416
